FAERS Safety Report 5414124-3 (Version None)
Quarter: 2007Q3

REPORT INFORMATION
  Report Type: 
  Country: None (occurrence: None)
  Receive Date: 20070814
  Receipt Date: 20070802
  Transmission Date: 20080115
  Serious: Yes (Other)
  Sender: FDA-Public Use
  Company Number: US-PFIZER INC-2007047508

PATIENT
  Sex: Female

DRUGS (9)
  1. CHANTIX [Suspect]
     Indication: SMOKING CESSATION THERAPY
     Route: 048
  2. DOXYCYCLINE [Suspect]
  3. PREDNISONE TAB [Suspect]
  4. MAXZIDE [Concomitant]
  5. XANAX [Concomitant]
  6. ALLEGRA [Concomitant]
  7. COMBIVENT [Concomitant]
  8. TUSSIONEX [Concomitant]
  9. AUGMENTIN '125' [Concomitant]

REACTIONS (6)
  - ANXIETY [None]
  - BLOOD PRESSURE INCREASED [None]
  - DEPRESSION [None]
  - HAEMOPHILUS INFECTION [None]
  - NAUSEA [None]
  - RHINITIS [None]
